FAERS Safety Report 5000755-1 (Version None)
Quarter: 2006Q2

REPORT INFORMATION
  Report Type: 
  Country: None (occurrence: None)
  Receive Date: 20060512
  Receipt Date: 20060126
  Transmission Date: 20061013
  Serious: Yes (Hospitalization, Congenital Anomaly)
  Sender: FDA-Public Use
  Company Number: US-MERCK-0601USA03591

PATIENT
  Age: 68 Year
  Sex: Male
  Weight: 68 kg

DRUGS (8)
  1. VIOXX [Suspect]
     Indication: PAIN
     Route: 048
     Dates: start: 20020301, end: 20041001
  2. VIOXX [Suspect]
     Route: 048
     Dates: start: 20020301, end: 20041001
  3. AVAPRO [Concomitant]
     Route: 065
  4. DIOVAN [Concomitant]
     Route: 065
  5. WARFARIN [Concomitant]
     Route: 065
  6. ALLEGRA [Concomitant]
     Route: 065
  7. HYDROCODONE BITARTRATE [Concomitant]
     Route: 065
  8. CEPHALEXIN [Concomitant]
     Route: 065

REACTIONS (10)
  - ATRIOVENTRICULAR BLOCK SECOND DEGREE [None]
  - AXILLARY VEIN THROMBOSIS [None]
  - BACK PAIN [None]
  - CYST [None]
  - DEEP VEIN THROMBOSIS [None]
  - DEHYDRATION [None]
  - HYPERTENSION [None]
  - HYPOMAGNESAEMIA [None]
  - OSTEOARTHRITIS [None]
  - SINUS BRADYCARDIA [None]
